FAERS Safety Report 17293944 (Version 3)
Quarter: 2020Q1

REPORT INFORMATION
  Report Type: Spontaneous
  Country: US (occurrence: US)
  Receive Date: 20200121
  Receipt Date: 20200319
  Transmission Date: 20200409
  Serious: No
  Sender: FDA-Public Use
  Company Number: US-SA-2020SA013505

PATIENT
  Age: 18 Year
  Sex: Female

DRUGS (3)
  1. BASAGLAR [Concomitant]
     Active Substance: INSULIN GLARGINE
     Route: 065
  2. ADMELOG [Suspect]
     Active Substance: INSULIN LISPRO
     Indication: TYPE 1 DIABETES MELLITUS
     Dosage: UNK
     Route: 065
  3. HUMALOG [Concomitant]
     Active Substance: INSULIN LISPRO
     Dosage: UNK
     Route: 065

REACTIONS (6)
  - Viral infection [Unknown]
  - Nasopharyngitis [Unknown]
  - Feeling abnormal [Unknown]
  - Malaise [Unknown]
  - Blood glucose increased [Unknown]
  - Product dispensing error [Unknown]
